FAERS Safety Report 17703281 (Version 2)
Quarter: 2020Q3

REPORT INFORMATION
  Report Type: Spontaneous
  Country: US (occurrence: US)
  Receive Date: 20200424
  Receipt Date: 20200819
  Transmission Date: 20201102
  Serious: Yes (Other)
  Sender: FDA-Public Use
  Company Number: US-009507513-2004USA006198

PATIENT
  Age: 49 Year
  Sex: Female

DRUGS (3)
  1. VERZENIO [Concomitant]
     Active Substance: ABEMACICLIB
     Dosage: UNK
  2. VENLAFAXINE HYDROCHLORIDE. [Concomitant]
     Active Substance: VENLAFAXINE HYDROCHLORIDE
     Dosage: UNK
  3. INTRON A [Suspect]
     Active Substance: INTERFERON ALFA-2B
     Indication: BREAST CANCER
     Dosage: 300,000 UNITS, TIW (STRENGTH: 18 MILLION UNITS (MU) MDV)
     Route: 023
     Dates: start: 20200421

REACTIONS (3)
  - No adverse event [Unknown]
  - Off label use [Unknown]
  - Incorrect route of product administration [Unknown]

NARRATIVE: CASE EVENT DATE: 20200421
